FAERS Safety Report 14754136 (Version 1)
Quarter: 2018Q2

REPORT INFORMATION
  Report Type: Report from Study
  Country: US (occurrence: US)
  Receive Date: 20180412
  Receipt Date: 20180412
  Transmission Date: 20180711
  Serious: Yes (Death)
  Sender: FDA-Public Use
  Company Number: US-PFIZER INC-2018147351

PATIENT

DRUGS (9)
  1. ETOPOSIDE. [Suspect]
     Active Substance: ETOPOSIDE
     Dosage: UNK UNK, CYCLIC
     Route: 042
  2. CYTARABINE. [Suspect]
     Active Substance: CYTARABINE
     Indication: ACUTE MYELOID LEUKAEMIA
     Dosage: 500 MG/M2, DAILY (96-H CONTINUOUS SUBCUTANEOUS INFUSION, CYCLE 1)
     Route: 058
  3. CYTARABINE. [Suspect]
     Active Substance: CYTARABINE
     Dosage: 500 MG/M2, DAILY (OVER A PERIOD OF 120 H, CYCLE 2)
     Route: 058
  4. DAUNOMYCIN [Suspect]
     Active Substance: DAUNORUBICIN
     Indication: ACUTE MYELOID LEUKAEMIA
     Dosage: 50 MG/M2, UNK (ON DAYS 1 AND 2, CYCLE 2)
     Route: 040
  5. ETOPOSIDE. [Suspect]
     Active Substance: ETOPOSIDE
     Dosage: UNK UNK, CYCLIC
     Route: 042
  6. ETOPOSIDE. [Suspect]
     Active Substance: ETOPOSIDE
     Indication: ACUTE MYELOID LEUKAEMIA
     Dosage: 70 MG/M2, UNK (OVER 1 H, CYCLE 1)
     Route: 042
  7. AZACITIDINE. [Suspect]
     Active Substance: AZACITIDINE
     Indication: ACUTE MYELOID LEUKAEMIA
     Dosage: 300 MG/M2, UNK (GIVEN 24 AND 48 H AFTER COMPLETION OF THE VP-16 INFUSION, CYCLE 4)
     Route: 040
  8. ETOPOSIDE. [Suspect]
     Active Substance: ETOPOSIDE
     Dosage: 500 MG/M2, DAILY (96-H INFUSION AT AN INITIAL DOSAGE, CYCLE 1)
     Route: 042
  9. AMSACRINE [Suspect]
     Active Substance: AMSACRINE
     Indication: ACUTE MYELOID LEUKAEMIA
     Dosage: 125 MG/M2, DAILY (CONTINUOUS 72-H INTRAVENOUS INFUSION, CYCLE 3)
     Route: 042

REACTIONS (1)
  - Death [Fatal]
